FAERS Safety Report 5056288-X (Version None)
Quarter: 2006Q3

REPORT INFORMATION
  Report Type: 
  Country: None (occurrence: None)
  Receive Date: 20060717
  Receipt Date: 20060629
  Transmission Date: 20061208
  Serious: Yes (Hospitalization)
  Sender: FDA-Public Use
  Company Number: 8017582

PATIENT
  Age: 67 Year
  Sex: Male
  Weight: 76.6 kg

DRUGS (21)
  1. ZAROXOLYN [Suspect]
     Indication: CARDIAC FAILURE
     Dosage: 2.5 MG PRN PO
     Route: 048
  2. NESIRITIDE [Suspect]
     Indication: CARDIAC FAILURE
     Dosage: 1/W
     Dates: start: 20060228
  3. PLAVIX [Concomitant]
  4. COUMADIN [Concomitant]
  5. MONOPRIL [Concomitant]
  6. ALDACTONE [Concomitant]
  7. NITRO-DUR [Concomitant]
  8. CORDARONE [Concomitant]
  9. K-DUR 10 [Concomitant]
  10. LIPITOR [Concomitant]
  11. FE SO4 [Concomitant]
  12. ARANESP [Concomitant]
  13. CALCIUM GLUCONATE [Concomitant]
  14. SYNTHROID [Concomitant]
  15. CELEXA [Concomitant]
  16. GLYBURIDE [Concomitant]
  17. NPH INSULIN [Concomitant]
  18. PENTOXIFYLLINE [Concomitant]
  19. PANTOPRAZOLE SODIUM [Concomitant]
  20. COLACE [Concomitant]
  21. RESTORIL [Concomitant]

REACTIONS (6)
  - ASTHENIA [None]
  - BLOOD CHLORIDE DECREASED [None]
  - BLOOD CREATININE INCREASED [None]
  - BLOOD SODIUM DECREASED [None]
  - DEHYDRATION [None]
  - FATIGUE [None]
